FAERS Safety Report 10629206 (Version 1)
Quarter: 2014Q4

REPORT INFORMATION
  Report Type: Spontaneous
  Country: US (occurrence: US)
  Receive Date: 20141205
  Receipt Date: 20141205
  Transmission Date: 20150529
  Serious: No
  Sender: FDA-Public Use
  Company Number: US-BRISTOL-MYERS SQUIBB COMPANY-21377486

PATIENT
  Age: 66 Year
  Sex: Female
  Weight: 61.22 kg

DRUGS (5)
  1. GLIPIZIDE. [Concomitant]
     Active Substance: GLIPIZIDE
  2. NATEGLINIDE. [Concomitant]
     Active Substance: NATEGLINIDE
  3. BYETTA [Suspect]
     Active Substance: EXENATIDE
  4. METFORMIN [Concomitant]
     Active Substance: METFORMIN HYDROCHLORIDE
  5. VITAMINS [Concomitant]
     Active Substance: VITAMINS

REACTIONS (2)
  - Glycosylated haemoglobin decreased [Unknown]
  - Blood glucose fluctuation [Unknown]
